FAERS Safety Report 7441478-9 (Version None)
Quarter: 2011Q2

REPORT INFORMATION
  Report Type: 
  Country: None (occurrence: None)
  Receive Date: 20110418
  Receipt Date: 20110413
  Transmission Date: 20111010
  Serious: Yes (Other)
  Sender: FDA-Public Use
  Company Number: USA/USA/11/0018012

PATIENT
  Age: 54 Year
  Sex: Female
  Weight: 108.4097 kg

DRUGS (4)
  1. NAPROXEN [Concomitant]
  2. DIURETICS (DIURETICS) [Concomitant]
  3. PRILOSEC [Concomitant]
  4. CIPROFLOXACIN [Suspect]
     Indication: KIDNEY INFECTION
     Dosage: 2 DOSAGE FORMS, 2 IN 1 D, ORAL
     Route: 048
     Dates: start: 20110407, end: 20110410

REACTIONS (3)
  - JOINT SWELLING [None]
  - OEDEMA PERIPHERAL [None]
  - ARTHRITIS [None]
